FAERS Safety Report 16129222 (Version 3)
Quarter: 2020Q2

REPORT INFORMATION
  Report Type: Spontaneous
  Country: GB (occurrence: AU)
  Receive Date: 20190328
  Receipt Date: 20200624
  Transmission Date: 20200713
  Serious: Yes (Other)
  Sender: FDA-Public Use
  Company Number: GB-OTSUKA AUSTRALIA PHARMACEUTICALS PTY LTD-2019_008663

PATIENT
  Age: 20 Year
  Sex: Male

DRUGS (15)
  1. OLANZAPINE. [Suspect]
     Active Substance: OLANZAPINE
     Dosage: 20 MG, QD
     Route: 065
  2. CLOZARIL [Suspect]
     Active Substance: CLOZAPINE
     Indication: SCHIZOPHRENIA
     Dosage: 300 MG, QD
     Route: 048
     Dates: start: 20181203
  3. CLONAZEPAM. [Suspect]
     Active Substance: CLONAZEPAM
     Dosage: 0.5 MG, QD
     Route: 065
  4. CLOZARIL [Suspect]
     Active Substance: CLOZAPINE
     Dosage: 300 MG, QD
     Route: 048
     Dates: start: 2018
  5. CLONAZEPAM. [Suspect]
     Active Substance: CLONAZEPAM
     Dosage: 4 MG, QD
     Route: 065
  6. ARIPIPRAZOLE. [Suspect]
     Active Substance: ARIPIPRAZOLE
     Indication: SCHIZOPHRENIA
     Dosage: UNK
     Route: 065
  7. OLANZAPINE. [Suspect]
     Active Substance: OLANZAPINE
     Indication: SCHIZOPHRENIA
     Dosage: UNK
     Route: 065
  8. OLANZAPINE. [Suspect]
     Active Substance: OLANZAPINE
     Dosage: 10 MG, QD
     Route: 065
  9. CLOZARIL [Suspect]
     Active Substance: CLOZAPINE
     Dosage: 206.25 MG, UNK
     Route: 048
     Dates: start: 20190702
  10. ABILIFY MAINTENA [Suspect]
     Active Substance: ARIPIPRAZOLE
     Indication: SCHIZOPHRENIA
     Dosage: UNK
     Route: 030
  11. OLANZAPINE. [Suspect]
     Active Substance: OLANZAPINE
     Dosage: 2 MG, QD
     Route: 065
     Dates: start: 2018
  12. CLOZARIL [Suspect]
     Active Substance: CLOZAPINE
     Dosage: UNK
     Route: 048
     Dates: start: 20181205
  13. CLONAZEPAM. [Suspect]
     Active Substance: CLONAZEPAM
     Dosage: 1 MG, QD
     Route: 065
     Dates: start: 2018
  14. CLOZARIL [Suspect]
     Active Substance: CLOZAPINE
     Dosage: 250 MG, QD
     Route: 048
     Dates: start: 20181211, end: 20181228
  15. CLONAZEPAM. [Suspect]
     Active Substance: CLONAZEPAM
     Indication: PRODUCT USED FOR UNKNOWN INDICATION
     Dosage: 2 MG, BID
     Route: 065

REACTIONS (7)
  - C-reactive protein increased [Not Recovered/Not Resolved]
  - Drug ineffective [Unknown]
  - Viral upper respiratory tract infection [Recovered/Resolved]
  - Myocarditis [Unknown]
  - Red cell distribution width decreased [Unknown]
  - Myocarditis [Recovering/Resolving]
  - Mental impairment [Unknown]

NARRATIVE: CASE EVENT DATE: 2018
